FAERS Safety Report 23523187 (Version 1)
Quarter: 2024Q1

REPORT INFORMATION
  Report Type: Spontaneous
  Country: US (occurrence: None)
  Receive Date: 20240214
  Receipt Date: 20240214
  Transmission Date: 20240410
  Serious: Yes (Other)
  Sender: FDA-Public Use
  Company Number: 2024A031437

PATIENT
  Sex: Male
  Weight: 103.9 kg

DRUGS (1)
  1. BREZTRI [Suspect]
     Active Substance: BUDESONIDE\FORMOTEROL\GLYCOPYRROLATE
     Indication: Asthma-chronic obstructive pulmonary disease overlap syndrome
     Dosage: 2UG/INHAL TWO TIMES A DAY
     Route: 055
     Dates: start: 20240118, end: 20240125

REACTIONS (1)
  - Haemoptysis [Recovering/Resolving]
